FAERS Safety Report 12841357 (Version 1)
Quarter: 2016Q4

REPORT INFORMATION
  Report Type: Spontaneous
  Country: US (occurrence: US)
  Receive Date: 20161012
  Receipt Date: 20161012
  Transmission Date: 20170207
  Serious: No
  Sender: FDA-Public Use
  Company Number: US-ACTELION-A-NJ2016-143605

PATIENT
  Age: 47 Year
  Sex: Female

DRUGS (2)
  1. NIFEDIPINE A [Concomitant]
  2. TRACLEER [Suspect]
     Active Substance: BOSENTAN
     Indication: PULMONARY HYPERTENSION
     Dosage: 125 MG, BID
     Route: 048
     Dates: start: 20140224

REACTIONS (2)
  - Abnormal faeces [Unknown]
  - Abdominal discomfort [Unknown]
